FAERS Safety Report 21815020 (Version 1)
Quarter: 2023Q1

REPORT INFORMATION
  Report Type: Spontaneous
  Country: GB (occurrence: GB)
  Receive Date: 20230104
  Receipt Date: 20230104
  Transmission Date: 20230417
  Serious: Yes (Life-Threatening, Disabling, Other)
  Sender: FDA-Public Use
  Company Number: GB-MHRA-MED-202212301552089800-JBMRC

PATIENT
  Age: 58 Year
  Sex: Female

DRUGS (2)
  1. NIVOLUMAB [Suspect]
     Active Substance: NIVOLUMAB
     Indication: Renal cell carcinoma
     Dosage: 3MG/KG - 4 CYCLES 21DAY INTERVALS FOLLOWED BY 480MG IV EVERY 4WEEKS
     Dates: end: 202004
  2. NIVOLUMAB [Suspect]
     Active Substance: NIVOLUMAB
     Route: 042
     Dates: start: 20210615

REACTIONS (1)
  - Adrenal insufficiency [Not Recovered/Not Resolved]

NARRATIVE: CASE EVENT DATE: 20220111
